FAERS Safety Report 10008798 (Version 2)
Quarter: 2014Q1

REPORT INFORMATION
  Report Type: Spontaneous
  Country: US (occurrence: US)
  Receive Date: 20140312
  Receipt Date: 20140312
  Transmission Date: 20141002
  Serious: No
  Sender: FDA-Public Use
  Company Number: US-INCYTE CORPORATION-2012IN000496

PATIENT
  Age: 61 Year
  Sex: Female
  Weight: 90.7 kg

DRUGS (11)
  1. JAKAFI [Suspect]
     Indication: MYELOFIBROSIS
     Dosage: 20 MG, BID
     Route: 048
     Dates: start: 20120313, end: 2012
  2. JAKAFI [Suspect]
     Dosage: 10 MG, QD
     Route: 048
     Dates: start: 20120507
  3. WARFARIN [Concomitant]
     Indication: ATRIAL FIBRILLATION
  4. COUMADIN [Concomitant]
     Dosage: 3 MG MONDAY THROUGH FRIDAY, ALL OTHER DAYS 1MG
  5. BENTYL [Concomitant]
  6. OMEPRAZOLE [Concomitant]
  7. TIAZAC [Concomitant]
  8. COATED ASPIRIN [Concomitant]
  9. ALLOPURINOL [Concomitant]
     Dosage: 100 MG, UNK
  10. PRAVASTATIN [Concomitant]
  11. DIPHENHYDRAMINE [Concomitant]

REACTIONS (4)
  - Dyspnoea [Not Recovered/Not Resolved]
  - Asthenia [Not Recovered/Not Resolved]
  - Platelet count decreased [Unknown]
  - Dizziness [Not Recovered/Not Resolved]
